FAERS Safety Report 7092109-1 (Version None)
Quarter: 2010Q4

REPORT INFORMATION
  Report Type: 
  Country: None (occurrence: None)
  Receive Date: 20101109
  Receipt Date: 20101025
  Transmission Date: 20110411
  Serious: Yes (Hospitalization)
  Sender: FDA-Public Use
  Company Number: DE-TEVA-254287GER

PATIENT
  Sex: Male

DRUGS (8)
  1. PREDNISOLONE [Suspect]
     Indication: PROSTATE CANCER METASTATIC
     Route: 048
     Dates: start: 20100505
  2. PREDNISOLONE [Suspect]
     Route: 048
     Dates: start: 20081118
  3. ABIRATERONE ACETATE OR PLACEBO [Suspect]
     Indication: PROSTATE CANCER METASTATIC
     Route: 048
     Dates: start: 20100505
  4. ABIRATERONE ACETATE OR PLACEBO [Suspect]
     Route: 048
     Dates: start: 20081219
  5. ZOLEDRONIC ACID [Concomitant]
     Indication: PROPHYLAXIS
     Dates: start: 20100421
  6. LEUPROLIDE ACETATE [Concomitant]
     Indication: PROPHYLAXIS
     Dates: start: 20100421
  7. BISPHOSPHONATES [Concomitant]
     Dates: start: 20081222
  8. GONADORELIN ACETATE [Concomitant]
     Indication: HORMONE THERAPY
     Dates: start: 20091222

REACTIONS (1)
  - ANAEMIA [None]
